FAERS Safety Report 9016081 (Version 2)
Quarter: 2013Q1

REPORT INFORMATION
  Report Type: Report from Study
  Country: US (occurrence: US)
  Receive Date: 20130116
  Receipt Date: 20130201
  Transmission Date: 20140127
  Serious: Yes (Hospitalization)
  Sender: FDA-Public Use
  Company Number: US-ACTELION-A-NJ2012-77194

PATIENT
  Age: 70 Year
  Sex: Female

DRUGS (5)
  1. TRACLEER [Suspect]
     Indication: PULMONARY ARTERIAL HYPERTENSION
     Dosage: UNK
     Route: 048
     Dates: start: 20121129, end: 20121129
  2. TRACLEER [Suspect]
     Dosage: UNK
     Route: 048
     Dates: start: 20121130
  3. CLONIDINE [Concomitant]
  4. HYTRIN [Concomitant]
  5. LASIX [Concomitant]

REACTIONS (3)
  - Diarrhoea [Recovered/Resolved]
  - Hypotension [Recovering/Resolving]
  - Syncope [Recovered/Resolved]
